FAERS Safety Report 7643565-9 (Version None)
Quarter: 2011Q3

REPORT INFORMATION
  Report Type: 
  Country: None (occurrence: None)
  Receive Date: 20110722
  Receipt Date: 20110712
  Transmission Date: 20111222
  Serious: Yes (Other)
  Sender: FDA-Public Use
  Company Number: ACO_25786_2011

PATIENT
  Age: 64 Year
  Sex: Female

DRUGS (11)
  1. MULTIVITAMIN [Concomitant]
  2. REBIF [Concomitant]
  3. FISH OIL W/LINUM USITATISSIMUM SEED SOIL (FISH OIL, LINUM USITATISSIMU [Concomitant]
  4. DIOVAN [Concomitant]
  5. MECLIZINE [Concomitant]
  6. SUPER B COMPLEX (VITAMIN B COMPLEX) [Concomitant]
  7. OMEPRAZOLE [Concomitant]
  8. STOOL SOFTENER (DOCUSATE SODIUM) [Concomitant]
  9. AMPYRA [Suspect]
     Indication: GAIT DISTURBANCE
     Dosage: 10 MG, BID;
     Dates: start: 20110709, end: 20110709
  10. AMANTADINE HCL [Concomitant]
  11. LEXAPRO [Concomitant]

REACTIONS (4)
  - NAUSEA [None]
  - LOSS OF CONSCIOUSNESS [None]
  - VOMITING [None]
  - CONVULSION [None]
